FAERS Safety Report 5325310-5 (Version None)
Quarter: 2007Q2

REPORT INFORMATION
  Report Type: 
  Country: None (occurrence: None)
  Receive Date: 20070509
  Receipt Date: 20070425
  Transmission Date: 20071010
  Serious: Yes (Other)
  Sender: FDA-Public Use
  Company Number: SPV1-2007-02364

PATIENT
  Age: 42 Year
  Sex: Female

DRUGS (1)
  1. AGRYLIN [Suspect]

REACTIONS (2)
  - NEPHRITIC SYNDROME [None]
  - NEPHRITIS [None]
